FAERS Safety Report 6428440-X (Version None)
Quarter: 2009Q4

REPORT INFORMATION
  Report Type: 
  Country: None (occurrence: None)
  Receive Date: 20091105
  Receipt Date: 20091028
  Transmission Date: 20100525
  Serious: Yes (Congenital Anomaly)
  Sender: FDA-Public Use
  Company Number: A0814859A

PATIENT
  Sex: Male

DRUGS (1)
  1. PAXIL CR [Suspect]
     Indication: DRUG USE FOR UNKNOWN INDICATION

REACTIONS (11)
  - ANAL ATRESIA [None]
  - CLOACAL EXSTROPHY [None]
  - CONGENITAL ANOMALY [None]
  - CONGENITAL BLADDER ANOMALY [None]
  - DRUG EXPOSURE DURING PREGNANCY [None]
  - INTESTINAL MALROTATION [None]
  - MULTIPLE CONGENITAL ABNORMALITIES [None]
  - PENIS DISORDER [None]
  - RENAL DYSPLASIA [None]
  - SCROTAL DISORDER [None]
  - VENTRICULAR SEPTAL DEFECT [None]
